FAERS Safety Report 4520181-9 (Version None)
Quarter: 2004Q4

REPORT INFORMATION
  Report Type: 
  Country: None (occurrence: None)
  Receive Date: 20041029
  Receipt Date: 20040823
  Transmission Date: 20050328
  Serious: No
  Sender: FDA-Public Use
  Company Number: 2004-119687-NL

PATIENT
  Age: 22 Year
  Sex: Female
  Weight: 73.6 kg

DRUGS (4)
  1. NUVARING [Suspect]
     Indication: CONTRACEPTION
     Dosage: DF DAILY, VAGINAL
     Route: 067
     Dates: start: 20031101, end: 20040817
  2. VITAMINS NOS [Concomitant]
  3. VITAMIN B COMPLEX CAP [Concomitant]
  4. CALCIUM [Concomitant]

REACTIONS (3)
  - DIARRHOEA [None]
  - VAGINAL CONTRACEPTIVE DEVICE EXPELLED [None]
  - WITHDRAWAL BLEED [None]
